FAERS Safety Report 7286706-8 (Version None)
Quarter: 2011Q1

REPORT INFORMATION
  Report Type: 
  Country: None (occurrence: None)
  Receive Date: 20110210
  Receipt Date: 20110131
  Transmission Date: 20110831
  Serious: Yes (Hospitalization, Other)
  Sender: FDA-Public Use
  Company Number: US-ELI_LILLY_AND_COMPANY-US201003005301

PATIENT
  Sex: Female

DRUGS (8)
  1. TRAVATAN [Concomitant]
     Dosage: UNK, EACH EVENING
  2. NORCO [Concomitant]
     Indication: PAIN
  3. BRIMONIDINE TARTRATE [Concomitant]
     Dosage: 15 MG, 3/D
  4. FORTEO [Suspect]
     Indication: OSTEOPOROSIS
     Dosage: 20 UG, DAILY (1/D)
     Route: 065
     Dates: start: 20100501, end: 20101101
  5. XANAX [Concomitant]
     Indication: ANXIETY
     Dosage: UNK, AS NEEDED
  6. PAXIL [Concomitant]
     Dosage: UNK, EACH MORNING
  7. CENTRUM [Concomitant]
     Dosage: UNK, DAILY (1/D)
  8. TYLENOL (CAPLET) [Concomitant]
     Dosage: 2 D/F, AS NEEDED AT BEDTIME

REACTIONS (6)
  - LACERATION [None]
  - DIZZINESS [None]
  - FATIGUE [None]
  - DRUG DOSE OMISSION [None]
  - MALAISE [None]
  - FALL [None]
